FAERS Safety Report 7132036-4 (Version None)
Quarter: 2010Q4

REPORT INFORMATION
  Report Type: 
  Country: None (occurrence: None)
  Receive Date: 20101202
  Receipt Date: 20101123
  Transmission Date: 20110411
  Serious: Yes (Other)
  Sender: FDA-Public Use
  Company Number: IE-ASTRAZENECA-2010SE47362

PATIENT
  Age: 59 Year
  Sex: Female
  Weight: 78.5 kg

DRUGS (8)
  1. ATACAND [Suspect]
     Indication: HYPERTENSION
     Route: 048
     Dates: start: 20100715, end: 20100720
  2. ATACAND [Suspect]
     Route: 048
  3. ATACAND [Suspect]
     Dosage: TITRATED TO 32 MG
     Route: 048
  4. AMLODIPINE [Concomitant]
     Dates: start: 20100716
  5. CHOLESTYRAMINE [Concomitant]
  6. PAROXETINE HCL [Concomitant]
  7. ESOMEPRAZOLE [Concomitant]
  8. DETRUSITOL [Concomitant]

REACTIONS (1)
  - HYPOTENSION [None]
